FAERS Safety Report 4354139-X (Version None)
Quarter: 2004Q2

REPORT INFORMATION
  Report Type: 
  Country: None (occurrence: None)
  Receive Date: 20040503
  Receipt Date: 20040416
  Transmission Date: 20050107
  Serious: Yes (Other)
  Sender: FDA-Public Use
  Company Number: 2004-DE-00750BY

PATIENT
  Age: 67 Year
  Sex: Female

DRUGS (9)
  1. KINZAL (TELMISARTAN) (NR) [Suspect]
     Indication: HYPERTENSION
     Dosage: SEE IMAGE
     Route: 048
     Dates: start: 20030906, end: 20031028
  2. KINZAL (TELMISARTAN) (NR) [Suspect]
     Indication: HYPERTENSION
     Dosage: SEE IMAGE
     Route: 048
     Dates: start: 20031029, end: 20031109
  3. KINZAL (TELMISARTAN) (NR) [Suspect]
     Indication: HYPERTENSION
     Dosage: SEE IMAGE
     Route: 048
     Dates: start: 20031110, end: 20031125
  4. KINZAL (TELMISARTAN) (NR) [Suspect]
     Indication: HYPERTENSION
     Dosage: SEE IMAGE
     Route: 048
     Dates: start: 20031226, end: 20040110
  5. KINZAL (TELMISARTAN) (NR) [Suspect]
     Indication: HYPERTENSION
     Dosage: SEE IMAGE
     Route: 048
     Dates: start: 20031125
  6. KINZAL (TELMISARTAN) (NR) [Suspect]
     Indication: HYPERTENSION
     Dosage: SEE IMAGE
     Route: 048
     Dates: start: 20040123
  7. UNAT COR (TORASEMIDE) [Concomitant]
  8. TICLOPIDINE HCL [Concomitant]
  9. ZOCOR [Concomitant]

REACTIONS (16)
  - ABDOMINAL DISCOMFORT [None]
  - BLOOD PRESSURE INCREASED [None]
  - DISEASE PROGRESSION [None]
  - ENCEPHALITIS [None]
  - ERYTHROMELALGIA [None]
  - GASTROINTESTINAL DISORDER [None]
  - GENERAL PHYSICAL HEALTH DETERIORATION [None]
  - HEADACHE [None]
  - HYPERAESTHESIA [None]
  - HYPERSENSITIVITY [None]
  - JAUNDICE [None]
  - NEUROLOGICAL SYMPTOM [None]
  - PALPITATIONS [None]
  - PRURITUS [None]
  - RASH [None]
  - URINARY RETENTION [None]
